FAERS Safety Report 16215262 (Version 1)
Quarter: 2019Q2

REPORT INFORMATION
  Report Type: Spontaneous
  Country: FR (occurrence: FR)
  Receive Date: 20190419
  Receipt Date: 20190419
  Transmission Date: 20190711
  Serious: Yes (Hospitalization)
  Sender: FDA-Public Use
  Company Number: FR-TEVA-2019-FR-1038834

PATIENT
  Age: 67 Year
  Sex: Male
  Weight: 55 kg

DRUGS (2)
  1. CARBOPLATINE [Suspect]
     Active Substance: CARBOPLATIN
     Indication: OROPHARYNGEAL SQUAMOUS CELL CARCINOMA
     Route: 041
     Dates: start: 20190219, end: 20190220
  2. ERBITUX [Suspect]
     Active Substance: CETUXIMAB
     Indication: OROPHARYNGEAL SQUAMOUS CELL CARCINOMA
     Route: 041
     Dates: start: 20190219, end: 20190220

REACTIONS (1)
  - Acute coronary syndrome [Recovered/Resolved with Sequelae]

NARRATIVE: CASE EVENT DATE: 20190221
